FAERS Safety Report 5771577-9 (Version None)
Quarter: 2008Q2

REPORT INFORMATION
  Report Type: 
  Country: None (occurrence: None)
  Receive Date: 20080613
  Receipt Date: 20080606
  Transmission Date: 20081010
  Serious: Yes (Hospitalization)
  Sender: FDA-Public Use
  Company Number: US-JNJFOC-20080601902

PATIENT
  Age: 53 Year
  Sex: Female
  Weight: 99.79 kg

DRUGS (6)
  1. TOPAMAX [Suspect]
     Indication: MIGRAINE PROPHYLAXIS
     Route: 048
  2. PROZAC [Concomitant]
     Dosage: 40MG AM, 20 MG PM
     Route: 048
  3. ADDEREX [Concomitant]
     Indication: MIGRAINE PROPHYLAXIS
     Route: 048
  4. COUMADIN [Concomitant]
  5. ELAVIL [Concomitant]
     Route: 048
  6. DARVOCET [Concomitant]
     Route: 048

REACTIONS (2)
  - PULMONARY THROMBOSIS [None]
  - THERAPEUTIC RESPONSE DECREASED [None]
